FAERS Safety Report 15390779 (Version 1)
Quarter: 2018Q3

REPORT INFORMATION
  Report Type: Spontaneous
  Country: US (occurrence: US)
  Receive Date: 20180910
  Receipt Date: 20180910
  Transmission Date: 20181010
  Serious: Yes (Life-Threatening, Hospitalization)
  Sender: FDA-Public Use
  Company Number: None

PATIENT
  Age: 61 Year
  Sex: Male
  Weight: 143.79 kg

DRUGS (1)
  1. WARFARIN [Suspect]
     Active Substance: WARFARIN
     Indication: ATRIAL FIBRILLATION
     Dates: start: 20101215, end: 20180831

REACTIONS (5)
  - Haematochezia [None]
  - Colitis [None]
  - Anaemia [None]
  - Gastric haemorrhage [None]
  - Alcohol use [None]

NARRATIVE: CASE EVENT DATE: 20180831
